FAERS Safety Report 8605069-6 (Version None)
Quarter: 2012Q3

REPORT INFORMATION
  Report Type: 
  Country: None (occurrence: None)
  Receive Date: 20120820
  Receipt Date: 20120810
  Transmission Date: 20120928
  Serious: Yes (Hospitalization, Other)
  Sender: FDA-Public Use
  Company Number: FR-JNJFOC-20111201665

PATIENT
  Sex: Male
  Weight: 43 kg

DRUGS (11)
  1. AZATHIOPRINE SODIUM [Concomitant]
     Dates: start: 20120701
  2. CHOLECALCIFEROL [Concomitant]
  3. ENTERAL NUTRITION [Concomitant]
     Route: 050
  4. ANTIBIOTICS [Concomitant]
     Indication: CROHN'S DISEASE
  5. PREDNISONE TAB [Concomitant]
  6. IRON [Concomitant]
  7. OMEPRAZOLE [Concomitant]
  8. INFLIXIMAB, RECOMBINANT [Suspect]
     Indication: CROHN'S DISEASE
     Dosage: INTERVAL OF DOSING WAS SHORTENED FROM EVERY 6 WKS TO EVERY 4 WKS TO EXPLAIN THE ^ DOSE INCREASE^
     Route: 042
     Dates: start: 20100301
  9. AZATHIOPRINE SODIUM [Concomitant]
     Indication: CROHN'S DISEASE
     Dates: end: 20120101
  10. INFLIXIMAB, RECOMBINANT [Suspect]
     Route: 042
     Dates: start: 20120708
  11. AZATHIOPRINE SODIUM [Concomitant]
     Dates: start: 20120708

REACTIONS (1)
  - CROHN'S DISEASE [None]
